FAERS Safety Report 4766979-3 (Version None)
Quarter: 2005Q3

REPORT INFORMATION
  Report Type: 
  Country: None (occurrence: None)
  Receive Date: 20050908
  Receipt Date: 20050825
  Transmission Date: 20060218
  Serious: Yes (Hospitalization)
  Sender: FDA-Public Use
  Company Number: 217304

PATIENT
  Age: 34 Year
  Sex: Female
  Weight: 109 kg

DRUGS (14)
  1. RITUXIMAB (RITUXIMAB) CONC FOR SOLUTION FOR INFUSION [Suspect]
     Indication: NON-HODGKIN'S LYMPHOMA
  2. CYCLOPHOSPHAMIDE [Suspect]
     Indication: NON-HODGKIN'S LYMPHOMA
  3. VINCRISTINE [Suspect]
     Indication: NON-HODGKIN'S LYMPHOMA
  4. DOXORUBICIN HCL [Suspect]
     Indication: NON-HODGKIN'S LYMPHOMA
     Dosage: 115 MG, Q2W, INTRAVENOUS
     Route: 042
     Dates: start: 20041217, end: 20050311
  5. PREDNISONE [Suspect]
     Indication: NON-HODGKIN'S LYMPHOMA
  6. NEULASTA [Suspect]
     Indication: NON-HODGKIN'S LYMPHOMA
     Dosage: 6 MG, Q2W, SUBCUTANEOUS
     Route: 058
     Dates: start: 20041218, end: 20050312
  7. ASCORBIC ACID [Suspect]
     Indication: NON-HODGKIN'S LYMPHOMA
     Dosage: 1 G, QD, ORAL
     Route: 048
     Dates: start: 20040311
  8. ACETYLCYSTEINE [Suspect]
     Indication: NON-HODGKIN'S LYMPHOMA
     Dosage: 600 MG, QD, ORAL
     Route: 048
     Dates: start: 20050311
  9. DEXTROMETHORPHAN HYDROBROMIDE [Suspect]
     Indication: DRUG USE FOR UNKNOWN INDICATION
     Dosage: 15 ML, QD, ORAL
     Route: 048
     Dates: start: 20040311
  10. BENZOCAINE(BENZOCAINE) [Suspect]
     Indication: DRUG USE FOR UNKNOWN INDICATION
  11. RANITIDINE [Concomitant]
  12. ALLOPURINOL [Concomitant]
  13. ACETAMINOPHEN [Concomitant]
  14. TRAMADOL HCL [Concomitant]

REACTIONS (3)
  - AGRANULOCYTOSIS [None]
  - AUTOIMMUNE DISORDER [None]
  - DRUG TOXICITY [None]
